FAERS Safety Report 4407777-X (Version None)
Quarter: 2004Q3

REPORT INFORMATION
  Report Type: 
  Country: None (occurrence: None)
  Receive Date: 20040721
  Receipt Date: 20040713
  Transmission Date: 20050211
  Serious: Yes (Death, Other)
  Sender: FDA-Public Use
  Company Number: 200410543BCA

PATIENT
  Age: 39 Year
  Sex: Female

DRUGS (4)
  1. CIPROFLOXACIN [Suspect]
     Dosage: 200 MG BID INTRAVENOUS
     Route: 042
  2. AMPHOTERICIN B [Suspect]
     Dosage: 40 MG QD
  3. CLAFORAN [Concomitant]
  4. FORTAZ [Concomitant]

REACTIONS (4)
  - RENAL IMPAIRMENT [None]
  - RESPIRATORY DISORDER [None]
  - SEPSIS [None]
  - THROMBOCYTOPENIA [None]
